FAERS Safety Report 7090793-X (Version None)
Quarter: 2010Q4

REPORT INFORMATION
  Report Type: 
  Country: None (occurrence: None)
  Receive Date: 20101109
  Receipt Date: 20101105
  Transmission Date: 20110411
  Serious: Yes (Other)
  Sender: FDA-Public Use
  Company Number: US-BRISTOL-MYERS SQUIBB COMPANY-15370729

PATIENT
  Age: 24 Year
  Sex: Male

DRUGS (3)
  1. ABILIFY [Suspect]
  2. GEODON [Interacting]
     Dosage: 2010:40MG, 2/DAY
     Dates: start: 20100416
  3. SERTRALINE HYDROCHLORIDE [Interacting]
     Dosage: ORAL SOLUTION RESTARTED WITH LOWER DOSE
     Dates: start: 20100323

REACTIONS (1)
  - SEROTONIN SYNDROME [None]
